FAERS Safety Report 14028900 (Version 1)
Quarter: 2017Q4

REPORT INFORMATION
  Report Type: Spontaneous
  Country: US (occurrence: None)
  Receive Date: 20171002
  Receipt Date: 20171002
  Transmission Date: 20180321
  Serious: Yes (Life-Threatening, Other)
  Sender: FDA-Public Use
  Company Number: None

PATIENT
  Age: 33 Year
  Sex: Female
  Weight: 70.76 kg

DRUGS (20)
  1. LYRICA [Suspect]
     Active Substance: PREGABALIN
     Indication: POST HERPETIC NEURALGIA
     Dosage: 600MG/DAY 1 PILL 3X 3 PILLS DAY MOUTH
     Route: 048
     Dates: start: 20161016, end: 20170820
  2. COMPAZINE [Concomitant]
     Active Substance: PROCHLORPERAZINE MALEATE
  3. JUNEL [Concomitant]
     Active Substance: ETHINYL ESTRADIOL\NORETHINDRONE ACETATE
  4. SYMBICORT [Concomitant]
     Active Substance: BUDESONIDE\FORMOTEROL FUMARATE DIHYDRATE
  5. ALBUTEROL. [Concomitant]
     Active Substance: ALBUTEROL
  6. PRILOSEC [Concomitant]
     Active Substance: OMEPRAZOLE MAGNESIUM
  7. METHOTREXATE. [Concomitant]
     Active Substance: METHOTREXATE
  8. BUPROPRINE [Concomitant]
  9. IMODIUM [Concomitant]
     Active Substance: LOPERAMIDE HYDROCHLORIDE
  10. BENADRYL [Concomitant]
     Active Substance: DIPHENHYDRAMINE HYDROCHLORIDE
  11. CALCIUM [Concomitant]
     Active Substance: CALCIUM
  12. ATIVAN [Concomitant]
     Active Substance: LORAZEPAM
  13. NAPROXEN. [Concomitant]
     Active Substance: NAPROXEN
  14. TRAMADOL HYDROCHLORIDE AND ACETAMINOPHEN [Concomitant]
     Active Substance: ACETAMINOPHEN\TRAMADOL HYDROCHLORIDE
  15. LYRICA [Suspect]
     Active Substance: PREGABALIN
     Indication: NEUROPATHY PERIPHERAL
     Dosage: 600MG/DAY 1 PILL 3X 3 PILLS DAY MOUTH
     Route: 048
     Dates: start: 20161016, end: 20170820
  16. MEPOLIZUMAB [Concomitant]
     Active Substance: MEPOLIZUMAB
  17. VITAMIN D [Concomitant]
     Active Substance: CHOLECALCIFEROL
  18. PREDNISONE. [Concomitant]
     Active Substance: PREDNISONE
  19. AMYTRIPTALIN [Concomitant]
  20. LYRICA [Suspect]
     Active Substance: PREGABALIN
     Indication: MONONEUROPATHY MULTIPLEX
     Dosage: 600MG/DAY 1 PILL 3X 3 PILLS DAY MOUTH
     Route: 048
     Dates: start: 20161016, end: 20170820

REACTIONS (1)
  - Suicidal ideation [None]

NARRATIVE: CASE EVENT DATE: 201610
